FAERS Safety Report 7324791-5 (Version None)
Quarter: 2011Q1

REPORT INFORMATION
  Report Type: 
  Country: None (occurrence: None)
  Receive Date: 20110301
  Receipt Date: 20110223
  Transmission Date: 20110831
  Serious: Yes (Hospitalization, Disabling, Other)
  Sender: FDA-Public Use
  Company Number: US-ABBOTT-11P-163-0705428-00

PATIENT
  Sex: Male

DRUGS (1)
  1. HUMIRA [Suspect]
     Indication: PRODUCT USED FOR UNKNOWN INDICATION
     Dosage: X5-6MONS
     Route: 058
     Dates: start: 20100701, end: 20110101

REACTIONS (8)
  - RESPIRATORY ARREST [None]
  - PROGRESSIVE MULTIFOCAL LEUKOENCEPHALOPATHY [None]
  - CROHN'S DISEASE [None]
  - BLINDNESS CORTICAL [None]
  - PARESIS [None]
  - ABDOMINAL PAIN [None]
  - HYPOTENSION [None]
  - ENDOTRACHEAL INTUBATION [None]
